FAERS Safety Report 20844096 (Version 1)
Quarter: 2022Q2

REPORT INFORMATION
  Report Type: Spontaneous
  Country: FR (occurrence: FR)
  Receive Date: 20220518
  Receipt Date: 20220518
  Transmission Date: 20220721
  Serious: Yes (Hospitalization)
  Sender: FDA-Public Use
  Company Number: None

PATIENT
  Age: 84 Year
  Sex: Female
  Weight: 39 kg

DRUGS (2)
  1. AMOXICILLIN [Suspect]
     Active Substance: AMOXICILLIN
     Indication: Corynebacterium infection
     Dosage: 2 G, TID (6G/ JOUR)
     Route: 048
     Dates: start: 20220326, end: 20220420
  2. LINEZOLID [Suspect]
     Active Substance: LINEZOLID
     Indication: Corynebacterium infection
     Dosage: 600 MG, BID (1200 MG/ JOUR)
     Route: 048
     Dates: start: 20220326, end: 20220420

REACTIONS (2)
  - Anaemia [Recovering/Resolving]
  - Pancytopenia [Recovering/Resolving]

NARRATIVE: CASE EVENT DATE: 20220407
